FAERS Safety Report 12279039 (Version 1)
Quarter: 2016Q2

REPORT INFORMATION
  Report Type: Spontaneous
  Country: US (occurrence: US)
  Receive Date: 20160418
  Receipt Date: 20160418
  Transmission Date: 20160815
  Serious: Yes (Other)
  Sender: FDA-Public Use
  Company Number: ADR-2015-00020

PATIENT
  Age: 52 Year
  Sex: Male

DRUGS (8)
  1. CLONIDINE. [Suspect]
     Active Substance: CLONIDINE
     Dosage: 55.82MCG/DAY
     Route: 037
     Dates: start: 2011
  2. BACLOFEN 20 [Suspect]
     Active Substance: BACLOFEN
     Route: 065
  3. COMPOUNDED BACLOFEN [Suspect]
     Active Substance: BACLOFEN
     Dosage: 121.7 MCG/DAY
     Route: 037
     Dates: start: 2011
  4. HYDROMORPHONE [Suspect]
     Active Substance: HYDROMORPHONE
     Dosage: 3.527 MG/DAY
     Route: 037
     Dates: start: 2011
  5. HYDROMORPHONE [Suspect]
     Active Substance: HYDROMORPHONE
     Dosage: 3.364 MG/DAY
     Route: 037
     Dates: start: 2011
  6. CLONIDINE. [Suspect]
     Active Substance: CLONIDINE
     Dosage: 155.82 MCG/DAY
     Route: 037
     Dates: start: 2011
  7. ORAL MEDICATION [Suspect]
     Active Substance: UNSPECIFIED INGREDIENT
     Route: 048
  8. OXYCODONE [Suspect]
     Active Substance: OXYCODONE
     Route: 065

REACTIONS (6)
  - Device infusion issue [None]
  - Muscle spasms [Recovered/Resolved]
  - Device material issue [None]
  - Device power source issue [None]
  - Drug withdrawal syndrome [Recovered/Resolved]
  - No therapeutic response [Recovered/Resolved]

NARRATIVE: CASE EVENT DATE: 201406
